FAERS Safety Report 15561632 (Version 1)
Quarter: 2018Q4

REPORT INFORMATION
  Report Type: Spontaneous
  Country: US (occurrence: US)
  Receive Date: 20181029
  Receipt Date: 20181029
  Transmission Date: 20190205
  Serious: No
  Sender: FDA-Public Use
  Company Number: US-GLAXOSMITHKLINE-US2018189806

PATIENT
  Age: 82 Year
  Sex: Male

DRUGS (1)
  1. FLONASE SENSIMIST ALLERGY RELIEF [Suspect]
     Active Substance: FLUTICASONE FUROATE
     Indication: NASAL CONGESTION
     Dosage: UNK
     Dates: start: 20181015, end: 20181017

REACTIONS (4)
  - Drug ineffective [Unknown]
  - Off label use [Unknown]
  - Product dose omission [Unknown]
  - Nasal discomfort [Recovering/Resolving]

NARRATIVE: CASE EVENT DATE: 20181017
